FAERS Safety Report 25759900 (Version 2)
Quarter: 2025Q3

REPORT INFORMATION
  Report Type: Spontaneous
  Country: EU (occurrence: EU)
  Receive Date: 20250904
  Receipt Date: 20250911
  Transmission Date: 20251020
  Serious: Yes (Other)
  Sender: RANBAXY
  Company Number: EU-SUN PHARMACEUTICAL INDUSTRIES LTD-2025R1-512480

PATIENT
  Age: 61 Year
  Sex: Male

DRUGS (14)
  1. IBUPROFEN [Suspect]
     Active Substance: IBUPROFEN
     Indication: Atrial fibrillation
     Route: 065
  2. IBUPROFEN [Suspect]
     Active Substance: IBUPROFEN
     Indication: Cardiac failure
  3. RIVAROXABAN [Suspect]
     Active Substance: RIVAROXABAN
     Indication: Atrial fibrillation
     Route: 065
  4. RIVAROXABAN [Suspect]
     Active Substance: RIVAROXABAN
     Indication: Cardiac failure
  5. DAPAGLIFLOZIN [Suspect]
     Active Substance: DAPAGLIFLOZIN
     Indication: Atrial fibrillation
     Route: 065
  6. DAPAGLIFLOZIN [Suspect]
     Active Substance: DAPAGLIFLOZIN
     Indication: Cardiac failure
  7. FLECAINIDE [Suspect]
     Active Substance: FLECAINIDE
     Indication: Atrial fibrillation
     Dosage: 200 MILLIGRAM, QD
     Route: 065
  8. FLECAINIDE [Suspect]
     Active Substance: FLECAINIDE
     Indication: Cardiac failure
  9. METOPROLOL [Suspect]
     Active Substance: METOPROLOL
     Indication: Cardiac failure
     Route: 065
  10. METOPROLOL [Suspect]
     Active Substance: METOPROLOL
     Indication: Atrial fibrillation
  11. ZOFENOPRIL [Suspect]
     Active Substance: ZOFENOPRIL
     Indication: Atrial fibrillation
     Route: 065
  12. ZOFENOPRIL [Suspect]
     Active Substance: ZOFENOPRIL
     Indication: Cardiac failure
  13. TOLPERISONE [Concomitant]
     Active Substance: TOLPERISONE
     Indication: Back pain
     Dosage: 150 MILLIGRAM, BID
     Route: 048
  14. TOLPERISONE [Concomitant]
     Active Substance: TOLPERISONE
     Indication: Sacral pain

REACTIONS (2)
  - Ventricular arrhythmia [Unknown]
  - Enzyme inhibition [Unknown]
